FAERS Safety Report 5215392-3 (Version None)
Quarter: 2007Q1

REPORT INFORMATION
  Report Type: 
  Country: None (occurrence: None)
  Receive Date: 20070116
  Receipt Date: 20070105
  Transmission Date: 20070707
  Serious: Yes (Hospitalization)
  Sender: FDA-Public Use
  Company Number: 151536USA

PATIENT
  Age: 15 Year
  Sex: Female

DRUGS (3)
  1. PIMOZIDE TABLETS (PIMOZIDE) [Suspect]
     Indication: AUTISM
     Dosage: 1 MG (1 MG, 1 IN 1 D) ORAL
     Route: 048
     Dates: start: 20060921, end: 20061117
  2. BIPERIDEN HYDROCHLORIDE TAB [Suspect]
     Dosage: (2 MG)
     Dates: start: 20060921, end: 20060101
  3. LITHIUM CARBONATE [Suspect]
     Dosage: 200 MG (200 MG, 1 IN 1 D)
     Dates: start: 20060921, end: 20060101

REACTIONS (3)
  - CONVULSION [None]
  - INAPPROPRIATE ANTIDIURETIC HORMONE SECRETION [None]
  - LOSS OF CONSCIOUSNESS [None]
